FAERS Safety Report 4353744-4 (Version None)
Quarter: 2004Q2

REPORT INFORMATION
  Report Type: 
  Country: None (occurrence: None)
  Receive Date: 20040505
  Receipt Date: 20040422
  Transmission Date: 20050107
  Serious: Yes (Hospitalization)
  Sender: FDA-Public Use
  Company Number: GB-MERCK-0404GBR00173

PATIENT
  Sex: Male

DRUGS (6)
  1. ZETIA [Suspect]
     Indication: HYPERCHOLESTEROLAEMIA
     Route: 048
     Dates: start: 20030704, end: 20030820
  2. IRBESARTAN [Concomitant]
     Indication: HYPERTENSION
     Route: 048
  3. ROSUVASTATIN CALCIUM [Suspect]
     Indication: HYPERCHOLESTEROLAEMIA
     Route: 048
     Dates: start: 20030628, end: 20030701
  4. ROSUVASTATIN CALCIUM [Suspect]
     Route: 048
     Dates: start: 20030701, end: 20030820
  5. ROSUVASTATIN CALCIUM [Suspect]
     Indication: DYSLIPIDAEMIA
     Route: 048
     Dates: start: 20030628, end: 20030701
  6. ROSUVASTATIN CALCIUM [Suspect]
     Route: 048
     Dates: start: 20030701, end: 20030820

REACTIONS (2)
  - LIVER FUNCTION TEST ABNORMAL [None]
  - RHABDOMYOLYSIS [None]
